FAERS Safety Report 15597170 (Version 5)
Quarter: 2019Q1

REPORT INFORMATION
  Report Type: Report from Study
  Country: TR (occurrence: TR)
  Receive Date: 20181108
  Receipt Date: 20190317
  Transmission Date: 20190417
  Serious: Yes (Hospitalization)
  Sender: FDA-Public Use
  Company Number: TR-ROCHE-2167534

PATIENT
  Age: 72 Year
  Sex: Female
  Weight: 56 kg

DRUGS (39)
  1. BEVACIZUMAB. [Suspect]
     Active Substance: BEVACIZUMAB
     Indication: OVARIAN CANCER
     Dosage: MOST RECENT DOSE (750 MG) ON 10/JUL/2018
     Route: 042
     Dates: start: 20180619
  2. ENOXAPARIN SODIUM. [Concomitant]
     Active Substance: ENOXAPARIN SODIUM
     Route: 065
     Dates: start: 20181025, end: 20181106
  3. ENOXAPARIN SODIUM. [Concomitant]
     Active Substance: ENOXAPARIN SODIUM
     Route: 065
     Dates: start: 20180731, end: 20180803
  4. RANITIDIN [Concomitant]
     Active Substance: RANITIDINE HYDROCHLORIDE
     Route: 065
     Dates: start: 20180814, end: 20180814
  5. PALONOSETRON HCL [Concomitant]
     Active Substance: PALONOSETRON HYDROCHLORIDE
     Route: 065
     Dates: start: 20180814, end: 20180814
  6. FENIRAMINE [Concomitant]
     Route: 065
     Dates: start: 20180814, end: 20180814
  7. BENZYDAMINE HCL [Concomitant]
     Route: 065
     Dates: start: 20180806, end: 20180811
  8. NUTRITIONAL SUPPLEMENT [Concomitant]
     Active Substance: DIETARY SUPPLEMENT
     Route: 065
     Dates: start: 20180525
  9. ENOXAPARIN SODIUM. [Concomitant]
     Active Substance: ENOXAPARIN SODIUM
     Indication: EMBOLISM
     Route: 065
     Dates: start: 20180814
  10. DEXAMETHASONE. [Concomitant]
     Active Substance: DEXAMETHASONE
     Route: 042
     Dates: start: 20180814, end: 20180814
  11. METOCLOPRAMIDE HCL [Concomitant]
     Active Substance: METOCLOPRAMIDE HYDROCHLORIDE
     Indication: SMALL INTESTINAL OBSTRUCTION
     Route: 065
     Dates: start: 20180806, end: 20180811
  12. FILGRASTIM [Concomitant]
     Active Substance: FILGRASTIM
     Route: 058
     Dates: start: 20180814, end: 20180814
  13. PALONOSETRON HCL [Concomitant]
     Active Substance: PALONOSETRON HYDROCHLORIDE
     Route: 065
     Dates: start: 20180710, end: 20180710
  14. FENIRAMINE [Concomitant]
     Route: 065
     Dates: start: 20180710, end: 20180710
  15. DEXAMETHASONE. [Concomitant]
     Active Substance: DEXAMETHASONE
     Route: 042
     Dates: start: 20180710, end: 20180710
  16. METOCLOPRAMIDE HCL [Concomitant]
     Active Substance: METOCLOPRAMIDE HYDROCHLORIDE
     Indication: VOMITING
     Route: 065
     Dates: start: 20180713, end: 20180717
  17. PANTOPRAZOL [Concomitant]
     Active Substance: PANTOPRAZOLE SODIUM
     Route: 065
     Dates: start: 20180731, end: 20180803
  18. BLINDED ATEZOLIZUMAB [Suspect]
     Active Substance: ATEZOLIZUMAB
     Indication: OVARIAN CANCER
     Dosage: MOST RECENT DOSE ON 10/JUL/2018?MOST RECENT DOSE : 16/OCT/2018
     Route: 042
     Dates: start: 20180515
  19. PARACETAMOL [Concomitant]
     Active Substance: ACETAMINOPHEN
     Indication: SMALL INTESTINAL OBSTRUCTION
     Route: 065
     Dates: start: 20180806, end: 20180811
  20. PANTOPRAZOL [Concomitant]
     Active Substance: PANTOPRAZOLE SODIUM
     Route: 065
     Dates: start: 20181025, end: 20181106
  21. TAZOBACTAM/PIPERACILLIN [Concomitant]
     Active Substance: PIPERACILLIN SODIUM\TAZOBACTAM SODIUM
     Indication: SMALL INTESTINAL OBSTRUCTION
     Route: 065
     Dates: start: 20180806, end: 20180806
  22. TAZOBACTAM/PIPERACILLIN [Concomitant]
     Active Substance: PIPERACILLIN SODIUM\TAZOBACTAM SODIUM
     Indication: TONSILLITIS
     Route: 065
     Dates: start: 20180731, end: 20180803
  23. CARBOPLATIN. [Suspect]
     Active Substance: CARBOPLATIN
     Indication: OVARIAN CANCER
     Dosage: AT A DOSE TO ACHIEVE A TARGET AREA UNDER THE CURVE (AUC) OF 6 MILLIGRAMS PER MILLILITER*MINUTE ?MOST
     Route: 042
     Dates: start: 20180515
  24. SERTRALINE [Concomitant]
     Active Substance: SERTRALINE HYDROCHLORIDE
     Indication: ANXIETY
     Route: 065
     Dates: start: 20180806
  25. PACLITAXEL. [Suspect]
     Active Substance: PACLITAXEL
     Indication: OVARIAN CANCER
     Dosage: MOST RECENT DOSE (160 MG) ON 10/JUL/2018?DATE OF MOST RECENT DOSE OF PACLITAXEL PRIOR TO AE ONSET: 1
     Route: 042
     Dates: start: 20180515
  26. PARACETAMOL [Concomitant]
     Active Substance: ACETAMINOPHEN
     Indication: PAIN
     Route: 065
     Dates: start: 20180713, end: 20180713
  27. PANTOPRAZOL [Concomitant]
     Active Substance: PANTOPRAZOLE SODIUM
     Indication: SMALL INTESTINAL OBSTRUCTION
     Route: 065
     Dates: start: 20180713, end: 20180717
  28. ENOXAPARIN SODIUM. [Concomitant]
     Active Substance: ENOXAPARIN SODIUM
     Indication: TONSILLITIS
     Route: 065
     Dates: start: 20180806, end: 20180811
  29. VITAMINE D [Concomitant]
     Active Substance: CHOLECALCIFEROL
     Route: 065
     Dates: start: 20180814
  30. FENIRAMINE [Concomitant]
     Route: 065
     Dates: start: 20180925, end: 20180925
  31. BENZYDAMINE HCL [Concomitant]
     Indication: TONSILLITIS
     Route: 065
     Dates: start: 20180731, end: 20180803
  32. PANTOPRAZOL [Concomitant]
     Active Substance: PANTOPRAZOLE SODIUM
     Route: 065
     Dates: start: 20180806, end: 20180811
  33. ESOMEPRAZOLE. [Concomitant]
     Active Substance: ESOMEPRAZOLE MAGNESIUM
     Route: 065
     Dates: start: 20180814
  34. RANITIDIN [Concomitant]
     Active Substance: RANITIDINE HYDROCHLORIDE
     Route: 065
     Dates: start: 20180710, end: 20180710
  35. PALONOSETRON HCL [Concomitant]
     Active Substance: PALONOSETRON HYDROCHLORIDE
     Route: 065
     Dates: start: 20180925, end: 20180925
  36. MEGESTROL ACETATE. [Concomitant]
     Active Substance: MEGESTROL ACETATE
     Indication: HYPOMAGNESAEMIA
     Route: 065
     Dates: start: 20180706
  37. DEXAMETHASONE. [Concomitant]
     Active Substance: DEXAMETHASONE
     Route: 042
     Dates: start: 20180814, end: 20180814
  38. UREA. [Concomitant]
     Active Substance: UREA
     Indication: DRY SKIN
     Route: 065
     Dates: start: 20180906
  39. PARACETAMOL [Concomitant]
     Active Substance: ACETAMINOPHEN
     Route: 065
     Dates: start: 20181025, end: 20181106

REACTIONS (1)
  - Small intestinal obstruction [Recovered/Resolved]

NARRATIVE: CASE EVENT DATE: 20180806
